FAERS Safety Report 15400616 (Version 1)
Quarter: 2018Q3

REPORT INFORMATION
  Report Type: Report from Study
  Country: US (occurrence: US)
  Receive Date: 20180919
  Receipt Date: 20180919
  Transmission Date: 20181010
  Serious: No
  Sender: FDA-Public Use
  Company Number: US-IPSEN BIOPHARMACEUTICALS, INC.-2018-14055

PATIENT
  Sex: Female

DRUGS (5)
  1. DDAVP [Concomitant]
     Active Substance: DESMOPRESSIN ACETATE
     Indication: DIABETES INSIPIDUS
  2. FLOVENT HFA [Concomitant]
     Active Substance: FLUTICASONE PROPIONATE
     Dosage: (220 MCG/ACT AEROSOL?1 PUFF BY INHALATION TWICE DAILY (2 IN 1 D)
  3. CORTEF [Concomitant]
     Active Substance: HYDROCORTISONE
     Dosage: 1 TABLET IN MORNING AND 1 BEFORE BED
  4. NUTROPIN AQ [Suspect]
     Active Substance: SOMATROPIN
     Indication: HYPOPITUITARISM
     Route: 058
     Dates: start: 201805
  5. SOLU?CORTEF [Concomitant]
     Active Substance: HYDROCORTISONE SODIUM SUCCINATE
     Indication: ADRENOCORTICAL INSUFFICIENCY ACUTE
     Route: 030

REACTIONS (2)
  - Acanthosis nigricans [Unknown]
  - Weight decreased [Unknown]
